FAERS Safety Report 16018717 (Version 4)
Quarter: 2019Q2

REPORT INFORMATION
  Report Type: Spontaneous
  Country: US (occurrence: US)
  Receive Date: 20190228
  Receipt Date: 20190530
  Transmission Date: 20190711
  Serious: Yes (Other)
  Sender: FDA-Public Use
  Company Number: US-GLAXOSMITHKLINE-US2019GSK035375

PATIENT
  Sex: Male

DRUGS (6)
  1. OMEPRAZOLE. [Suspect]
     Active Substance: OMEPRAZOLE
     Indication: PRODUCT USED FOR UNKNOWN INDICATION
     Dosage: UNK
     Route: 065
  2. PANTOPRAZOLE [Suspect]
     Active Substance: PANTOPRAZOLE
     Indication: PRODUCT USED FOR UNKNOWN INDICATION
     Dosage: UNK
     Route: 065
  3. PREVACID [Suspect]
     Active Substance: LANSOPRAZOLE
     Indication: GASTROOESOPHAGEAL REFLUX DISEASE
     Dosage: 30 MG, QD
     Route: 065
  4. LANSOPRAZOLE. [Suspect]
     Active Substance: LANSOPRAZOLE
     Indication: PRODUCT USED FOR UNKNOWN INDICATION
     Dosage: UNK
     Route: 065
  5. PREVACID [Suspect]
     Active Substance: LANSOPRAZOLE
     Indication: PRODUCT USED FOR UNKNOWN INDICATION
     Dosage: UNK
     Route: 065
  6. ESOMEPRAZOLE. [Suspect]
     Active Substance: ESOMEPRAZOLE MAGNESIUM
     Indication: PRODUCT USED FOR UNKNOWN INDICATION
     Dosage: UNK
     Route: 065

REACTIONS (16)
  - End stage renal disease [Unknown]
  - Renal injury [Unknown]
  - Chronic kidney disease [Unknown]
  - Renal cyst [Unknown]
  - Nephrosclerosis [Unknown]
  - Diabetic nephropathy [Unknown]
  - Renal impairment [Unknown]
  - Hypertensive nephropathy [Unknown]
  - Blood creatinine abnormal [Unknown]
  - Nephrolithiasis [Unknown]
  - Glomerular filtration rate abnormal [Unknown]
  - Renal cyst haemorrhage [Unknown]
  - Nephropathy [Unknown]
  - Dialysis [Unknown]
  - Proteinuria [Unknown]
  - Dysuria [Unknown]
